FAERS Safety Report 9322491 (Version 1)
Quarter: 2013Q2

REPORT INFORMATION
  Report Type: Spontaneous
  Country: US (occurrence: US)
  Receive Date: 20130531
  Receipt Date: 20130531
  Transmission Date: 20140414
  Serious: Yes (Death)
  Sender: FDA-Public Use
  Company Number: GXBR2013US001150

PATIENT
  Sex: Female

DRUGS (11)
  1. CARISOPRODOL [Suspect]
     Dosage: UNK MG, UNK
  2. TRAMADOL HYDROCHLORIDE TABLETS [Suspect]
     Dosage: UNK MG, UNK
  3. ZOLPIDEM TARTRATE [Suspect]
     Dosage: UNK MG, UNK
  4. TEMAZEPAM CAPSULES USP [Suspect]
     Dosage: UNK MG, UNK
  5. DIPHENHYDRAMINE HCL [Suspect]
     Dosage: UNK MG, UNK
  6. CITALOPRAM HYDROBROMIDE [Suspect]
     Dosage: UNK MG, UNK
  7. METAXALONE [Suspect]
     Dosage: UNK MG, UNK
  8. MEPROBAMATE [Suspect]
     Dosage: UNK MG, UNK
  9. PROMETHAZINE HCL [Suspect]
     Dosage: UNK MG, UNK
  10. BUTALBITAL [Suspect]
     Dosage: UNK MG, UNK
  11. HYDROCODONE [Suspect]
     Dosage: UNK MG, UNK

REACTIONS (2)
  - Toxicity to various agents [Fatal]
  - Completed suicide [Fatal]
